FAERS Safety Report 11592485 (Version 2)
Quarter: 2015Q4

REPORT INFORMATION
  Report Type: Report from Study
  Country: CA (occurrence: CA)
  Receive Date: 20151005
  Receipt Date: 20151029
  Transmission Date: 20160304
  Serious: Yes (Other)
  Sender: FDA-Public Use
  Company Number: CA-ABBVIE-15K-028-1473474-00

PATIENT
  Sex: Female

DRUGS (1)
  1. HUMIRA [Suspect]
     Active Substance: ADALIMUMAB
     Indication: CROHN^S DISEASE
     Route: 058
     Dates: start: 20130419, end: 201506

REACTIONS (3)
  - Gastrointestinal injury [Not Recovered/Not Resolved]
  - Large intestine perforation [Recovered/Resolved]
  - Gastrointestinal disorder [Recovered/Resolved]
